FAERS Safety Report 5128268-7 (Version None)
Quarter: 2006Q4

REPORT INFORMATION
  Report Type: 
  Country: None (occurrence: None)
  Receive Date: 20061017
  Receipt Date: 20061003
  Transmission Date: 20070319
  Serious: Yes (Hospitalization)
  Sender: FDA-Public Use
  Company Number: US-AMGEN-US195914

PATIENT
  Age: 87 Year
  Sex: Male

DRUGS (10)
  1. EPOGEN [Suspect]
     Indication: RENAL FAILURE CHRONIC
     Route: 058
     Dates: start: 20050401
  2. POTASSIUM CHLORIDE [Concomitant]
  3. LASIX [Concomitant]
  4. OXYGEN [Concomitant]
  5. ALLOPURINOL [Concomitant]
  6. PROTONIX [Concomitant]
  7. PROSCAR [Concomitant]
  8. FLOMAX [Concomitant]
  9. ZOLOFT [Concomitant]
  10. RIVASTIGIMINE [Concomitant]

REACTIONS (7)
  - BLOOD PRESSURE INCREASED [None]
  - BRONCHITIS [None]
  - CARDIAC FAILURE CONGESTIVE [None]
  - PLEURAL EFFUSION [None]
  - PULMONARY HYPERTENSION [None]
  - THERAPEUTIC RESPONSE DECREASED [None]
  - URINARY TRACT INFECTION [None]
